FAERS Safety Report 20905852 (Version 1)
Quarter: 2022Q2

REPORT INFORMATION
  Report Type: Report from Study
  Country: CA (occurrence: CA)
  Receive Date: 20220602
  Receipt Date: 20220602
  Transmission Date: 20220721
  Serious: Yes (Disabling)
  Sender: FDA-Public Use
  Company Number: CA-PFIZER INC-202200777935

PATIENT
  Age: 73 Year
  Sex: Female

DRUGS (4)
  1. METHOTREXATE SODIUM [Suspect]
     Active Substance: METHOTREXATE SODIUM
     Dosage: UNK
     Route: 058
  2. ACITRETIN [Concomitant]
     Active Substance: ACITRETIN
     Dosage: UNK
  3. HUMIRA [Concomitant]
     Active Substance: ADALIMUMAB
     Dosage: UNK
     Route: 058
  4. SORIATANE [Concomitant]
     Active Substance: ACITRETIN
     Dosage: UNK

REACTIONS (4)
  - Arthropathy [Unknown]
  - Pain of skin [Unknown]
  - Pruritus [Unknown]
  - Psoriasis [Unknown]
